FAERS Safety Report 5800747-6 (Version None)
Quarter: 2008Q3

REPORT INFORMATION
  Report Type: 
  Country: None (occurrence: None)
  Receive Date: 20080703
  Receipt Date: 20080623
  Transmission Date: 20090109
  Serious: Yes (Death)
  Sender: FDA-Public Use
  Company Number: US-BAXTER-2008BH006915

PATIENT
  Age: 71 Year
  Sex: Male

DRUGS (2)
  1. DIANEAL [Suspect]
     Indication: RENAL FAILURE ACUTE
     Dosage: DOSE UNIT:UNKNOWN
     Route: 033
     Dates: start: 20080101, end: 20080601
  2. DIANEAL [Suspect]
     Indication: RENAL FAILURE ACUTE
     Dosage: DOSE UNIT:UNKNOWN
     Route: 033
     Dates: start: 20080101, end: 20080601

REACTIONS (1)
  - WAGNER'S DISEASE [None]
